FAERS Safety Report 8178124-5 (Version None)
Quarter: 2012Q1

REPORT INFORMATION
  Report Type: 
  Country: None (occurrence: None)
  Receive Date: 20120301
  Receipt Date: 20120224
  Transmission Date: 20120608
  Serious: Yes (Other)
  Sender: FDA-Public Use
  Company Number: US-TEVA-322756USA

PATIENT
  Sex: Male

DRUGS (2)
  1. COPAXONE [Suspect]
     Indication: MULTIPLE SCLEROSIS
     Dosage: 20 MILLIGRAM;
     Route: 058
     Dates: start: 19950101, end: 20120124
  2. GILENYA [Suspect]
     Indication: MULTIPLE SCLEROSIS
     Dosage: .5 MILLIGRAM;
     Route: 048
     Dates: start: 20120125, end: 20120213

REACTIONS (1)
  - PLATELET COUNT DECREASED [None]
